FAERS Safety Report 6169466-3 (Version None)
Quarter: 2009Q2

REPORT INFORMATION
  Report Type: 
  Country: None (occurrence: None)
  Receive Date: 20090428
  Receipt Date: 20090422
  Transmission Date: 20091009
  Serious: Yes (Death)
  Sender: FDA-Public Use
  Company Number: PHHO2003FR12260

PATIENT
  Sex: Male

DRUGS (1)
  1. SANDOSTATIN LAR [Suspect]
     Indication: HEPATIC NEOPLASM MALIGNANT NON-RESECTABLE
     Route: 030
     Dates: start: 20030718, end: 20030718

REACTIONS (6)
  - CEREBRAL ISCHAEMIA [None]
  - CEREBROVASCULAR ACCIDENT [None]
  - CONVULSION [None]
  - EMBOLISM [None]
  - MALIGNANT NEOPLASM PROGRESSION [None]
  - THROMBOSIS [None]
